FAERS Safety Report 10109765 (Version 2)
Quarter: 2014Q2

REPORT INFORMATION
  Report Type: Spontaneous
  Country: US (occurrence: US)
  Receive Date: 20140425
  Receipt Date: 20140425
  Transmission Date: 20141212
  Serious: No
  Sender: FDA-Public Use
  Company Number: US-US-EMD SERONO, INC.-233622J09USA

PATIENT
  Age: 39 Year
  Sex: Female

DRUGS (2)
  1. REBIF [Suspect]
     Indication: MULTIPLE SCLEROSIS
     Route: 058
     Dates: start: 20080801
  2. AMITRIPTYLINE [Concomitant]
     Indication: INSOMNIA

REACTIONS (16)
  - Injury associated with device [Recovering/Resolving]
  - Skin discolouration [Recovering/Resolving]
  - Vomiting [Recovered/Resolved]
  - Injection site scab [Unknown]
  - Computerised tomogram abnormal [Unknown]
  - Abdominal pain [Recovering/Resolving]
  - Injury [Recovered/Resolved]
  - Haemorrhage [Recovered/Resolved]
  - Peripheral swelling [Not Recovered/Not Resolved]
  - Weight increased [Unknown]
  - Injection site injury [Unknown]
  - Tooth disorder [Unknown]
  - Toothache [Unknown]
  - Platelet count decreased [Unknown]
  - Pain [Unknown]
  - Injection site infection [Unknown]
